FAERS Safety Report 7635132-8 (Version None)
Quarter: 2011Q3

REPORT INFORMATION
  Report Type: 
  Country: None (occurrence: None)
  Receive Date: 20110726
  Receipt Date: 20110617
  Transmission Date: 20111222
  Serious: Yes (Death, Other)
  Sender: FDA-Public Use
  Company Number: PHHY2011JP51635

PATIENT
  Sex: Male
  Weight: 63 kg

DRUGS (12)
  1. ACETAMINOPHEN [Concomitant]
     Indication: RENAL CELL CARCINOMA
     Dosage: 1800 MG, UNK
     Route: 048
     Dates: start: 20110408
  2. PRIMPERAN TAB [Concomitant]
     Dosage: 15 MG, UNK
     Route: 048
     Dates: start: 20110419
  3. FENTANYL [Concomitant]
     Indication: RENAL CELL CARCINOMA
     Dosage: 2.1 MG, UNK
     Dates: start: 20110427
  4. ADALAT [Concomitant]
     Dosage: 20 MG, UNK
     Route: 048
     Dates: end: 20110415
  5. TOUGHMAC E [Concomitant]
     Indication: RENAL CELL CARCINOMA
     Dosage: 1.5 G, UNK
     Route: 048
     Dates: start: 20110419
  6. AFINITOR [Suspect]
     Indication: RENAL CELL CARCINOMA
     Dosage: 5 MG, DAILY
     Route: 048
     Dates: start: 20110421
  7. OXYCONTIN [Concomitant]
     Indication: RENAL CELL CARCINOMA
     Dosage: 10 MG, UNK
     Route: 048
     Dates: start: 20110423, end: 20110427
  8. MAGNESIUM OXIDE [Concomitant]
     Indication: RENAL CELL CARCINOMA
     Dosage: 1.5 G, UNK
     Route: 048
     Dates: start: 20110409
  9. SUNITINIB MALATE [Concomitant]
     Indication: RENAL CELL CARCINOMA
     Dosage: 50 MG, UNK
     Route: 048
     Dates: start: 20110404, end: 20110411
  10. CYTOTEC [Concomitant]
     Indication: RENAL CELL CARCINOMA
     Dosage: 600 MG, UNK
     Route: 048
     Dates: start: 20110408
  11. DAIO-KANZO-TO [Concomitant]
     Indication: RENAL CELL CARCINOMA
     Dosage: 3 DF, UNK
     Route: 048
     Dates: start: 20110425
  12. LOSARTAN POTASSIUM [Concomitant]
     Dosage: 50 MG, UNK
     Route: 048
     Dates: end: 20110415

REACTIONS (6)
  - GAMMA-GLUTAMYLTRANSFERASE INCREASED [None]
  - C-REACTIVE PROTEIN INCREASED [None]
  - NEOPLASM PROGRESSION [None]
  - NEOPLASM MALIGNANT [None]
  - ASPARTATE AMINOTRANSFERASE INCREASED [None]
  - BLOOD ALKALINE PHOSPHATASE INCREASED [None]
